FAERS Safety Report 11330075 (Version 4)
Quarter: 2015Q3

REPORT INFORMATION
  Report Type: Spontaneous
  Country: US (occurrence: US)
  Receive Date: 20150803
  Receipt Date: 20150911
  Transmission Date: 20151125
  Serious: Yes (Other)
  Sender: FDA-Public Use
  Company Number: US-PFIZER INC-2015258105

PATIENT
  Age: 73 Year
  Sex: Female
  Weight: 67 kg

DRUGS (15)
  1. BUSPAR [Concomitant]
     Active Substance: BUSPIRONE HYDROCHLORIDE
     Indication: ANXIETY
     Dosage: 15 MG, 3X/DAY
     Route: 048
     Dates: start: 20150526
  2. AZULFIDINE [Concomitant]
     Active Substance: SULFASALAZINE
     Dosage: 500 MG, 4X/DAY
     Route: 048
     Dates: start: 20150226
  3. BENEFIBER [Concomitant]
     Active Substance: STARCH, WHEAT
     Dosage: 1 DF, DAILY (3 GRAM/3.5 GRAM POWD, 1 PACKET DAILY)
     Route: 048
  4. LYRICA [Suspect]
     Active Substance: PREGABALIN
     Indication: FIBROMYALGIA
     Dosage: 75 MG, EVERY 4 HRS
     Route: 048
  5. AMLACTIN [Concomitant]
     Active Substance: AMMONIUM LACTATE
     Dosage: 12 %, 2X/DAY (EVERY 12 HRS AS NEEDED)
     Route: 061
  6. NASONEX [Concomitant]
     Active Substance: MOMETASONE FUROATE
     Dosage: 2 DF, DAILY (2 SPRAYS INTO NARE(S) DAILY,50MCG/ACTUATION )
     Route: 045
     Dates: start: 20150224
  7. CLIMARA [Concomitant]
     Active Substance: ESTRADIOL
     Dosage: 1 DF, WEEKLY (0.0375MG/24HR, 1 PATCH)
     Route: 062
     Dates: start: 20141125
  8. SULFASALAZINE. [Concomitant]
     Active Substance: SULFASALAZINE
     Indication: COLITIS MICROSCOPIC
     Dosage: 500 MG, 4X/DAY
  9. XANAX [Concomitant]
     Active Substance: ALPRAZOLAM
     Dosage: 2 MG, AT BEDTIME
     Route: 048
     Dates: start: 2006
  10. LOMOTIL [Concomitant]
     Active Substance: ATROPINE SULFATE\DIPHENOXYLATE HYDROCHLORIDE
     Indication: DIARRHOEA
     Dosage: 2 DF, 4X/DAY (DIPHENOXYLATE HYDROCHLORIDE 2.5MG/ ATROPINE 0.025 MG AS NEEDED)
     Route: 048
     Dates: start: 20131004
  11. NORCO [Concomitant]
     Active Substance: ACETAMINOPHEN\HYDROCODONE BITARTRATE
     Dosage: UNK UNK, 4X/DAY (HYDROCODONE BITARTRATE:5MG/ACETAMINOPHEN 325MG TAKE ? 1 EVERY 6 HOURS AS NEEDED)
     Route: 048
     Dates: start: 20150608
  12. BUSPAR [Concomitant]
     Active Substance: BUSPIRONE HYDROCHLORIDE
     Indication: MUSCLE SPASMS
  13. LYRICA [Suspect]
     Active Substance: PREGABALIN
     Indication: TRIGEMINAL NEURALGIA
     Dosage: 1-2 TABLETS A DAY
     Route: 048
  14. XANAX [Concomitant]
     Active Substance: ALPRAZOLAM
     Indication: ANXIETY
     Dosage: 1.5 MG, 3X/DAY
     Route: 048
     Dates: start: 2006
  15. PARAFON FORTE [Concomitant]
     Active Substance: CHLORZOXAZONE
     Indication: MUSCLE SPASMS
     Dosage: 500 MG, 4X/DAY (AS NEEDED)
     Route: 048
     Dates: start: 20140218

REACTIONS (5)
  - Hypoaesthesia [Not Recovered/Not Resolved]
  - Nerve injury [Unknown]
  - Weight increased [Recovered/Resolved]
  - Eye pain [Not Recovered/Not Resolved]
  - Hypoaesthesia oral [Not Recovered/Not Resolved]

NARRATIVE: CASE EVENT DATE: 2006
